FAERS Safety Report 21950840 (Version 1)
Quarter: 2023Q1

REPORT INFORMATION
  Report Type: Spontaneous
  Country: US (occurrence: US)
  Receive Date: 20230203
  Receipt Date: 20230203
  Transmission Date: 20230417
  Serious: No
  Sender: FDA-Public Use
  Company Number: US-DSJP-DSU-2023-104114AA

PATIENT
  Sex: Female

DRUGS (1)
  1. TURALIO [Suspect]
     Active Substance: PEXIDARTINIB HYDROCHLORIDE
     Indication: Product used for unknown indication
     Dosage: 600 MG, QD (200 MG IN THE MORNING AND 400 MG AT NIGHT)
     Route: 048

REACTIONS (1)
  - No adverse event [Unknown]
